FAERS Safety Report 5810177-9 (Version None)
Quarter: 2008Q3

REPORT INFORMATION
  Report Type: 
  Country: None (occurrence: None)
  Receive Date: 20080715
  Receipt Date: 20071011
  Transmission Date: 20090109
  Serious: No
  Sender: FDA-Public Use
  Company Number: A0682461A

PATIENT
  Age: 41 Year
  Sex: Female
  Weight: 62.7 kg

DRUGS (4)
  1. IMITREX [Suspect]
     Indication: MIGRAINE
     Dosage: 100MG AS REQUIRED
     Route: 048
     Dates: start: 20070401
  2. PREMARIN [Concomitant]
  3. LORATADINE [Concomitant]
  4. ALLEGRA-D [Concomitant]

REACTIONS (1)
  - DRUG INEFFECTIVE [None]
